FAERS Safety Report 15059604 (Version 1)
Quarter: 2018Q2

REPORT INFORMATION
  Report Type: Spontaneous
  Country: US (occurrence: US)
  Receive Date: 20180625
  Receipt Date: 20180625
  Transmission Date: 20180711
  Serious: No
  Sender: FDA-Public Use
  Company Number: US-SA-2018SA162798

PATIENT
  Age: 62 Year
  Sex: Female

DRUGS (1)
  1. DUPIXENT [Suspect]
     Active Substance: DUPILUMAB
     Indication: DERMATITIS ATOPIC
     Dosage: 300 MG, QW
     Dates: start: 20180424

REACTIONS (7)
  - Vision blurred [Unknown]
  - Eye swelling [Unknown]
  - Eye pruritus [Unknown]
  - Conjunctivitis [Unknown]
  - Ocular hyperaemia [Unknown]
  - Product use issue [Unknown]
  - Eye pain [Unknown]

NARRATIVE: CASE EVENT DATE: 20180424
